FAERS Safety Report 17218944 (Version 2)
Quarter: 2020Q1

REPORT INFORMATION
  Report Type: Spontaneous
  Country: US (occurrence: US)
  Receive Date: 20191231
  Receipt Date: 20200213
  Transmission Date: 20200409
  Serious: Yes (Hospitalization, Other)
  Sender: FDA-Public Use
  Company Number: US-PFIZER INC-2019558358

PATIENT
  Age: 63 Year
  Sex: Female
  Weight: 85.26 kg

DRUGS (2)
  1. XELJANZ [Suspect]
     Active Substance: TOFACITINIB CITRATE
     Indication: COLITIS ULCERATIVE
     Dosage: 5 MG, 2X/DAY
     Route: 048
     Dates: start: 20190123
  2. AMBIEN [Concomitant]
     Active Substance: ZOLPIDEM TARTRATE
     Dosage: 10 MG, UNK

REACTIONS (5)
  - Immune system disorder [Unknown]
  - Groin infection [Not Recovered/Not Resolved]
  - Pyrexia [Unknown]
  - Postoperative wound infection [Not Recovered/Not Resolved]
  - Groin abscess [Unknown]
